FAERS Safety Report 8694766 (Version 2)
Quarter: 2013Q2

REPORT INFORMATION
  Report Type: Report from Study
  Country: JP (occurrence: JP)
  Receive Date: 20120731
  Receipt Date: 20130611
  Transmission Date: 20140414
  Serious: Yes (Other)
  Sender: FDA-Public Use
  Company Number: JP-009507513-1207JPN010206

PATIENT
  Age: 68 Year
  Sex: Male

DRUGS (17)
  1. ZOLINZA CAPSULES 100MG [Suspect]
     Indication: MYCOSIS FUNGOIDES
     Dosage: 400 MG, QD
     Route: 048
     Dates: start: 20111101, end: 20111104
  2. ZOLINZA CAPSULES 100MG [Suspect]
     Dosage: 300 MG, QD
     Route: 048
     Dates: start: 20111110, end: 20111116
  3. FILDESIN [Concomitant]
     Indication: MYCOSIS FUNGOIDES
     Dosage: DAILY DOSAGE UNKNOWN
     Route: 042
     Dates: start: 201011
  4. DEXAMETHASONE SODIUM PHOSPHATE [Concomitant]
     Indication: MYCOSIS FUNGOIDES
     Dosage: DAILY DOSAGE UNKNOWN
     Route: 065
     Dates: start: 201011
  5. DEXAMETHASONE SODIUM PHOSPHATE [Concomitant]
     Dosage: DAILY DOSAGE UNKNOWN
     Route: 065
     Dates: start: 20110913
  6. CAMPTO [Concomitant]
     Indication: MYCOSIS FUNGOIDES
     Dosage: DAILY DOSAGE UNKNOWN
     Route: 041
     Dates: start: 20110808
  7. PARAPLATIN [Concomitant]
     Indication: MYCOSIS FUNGOIDES
     Dosage: DAILY DOSAGE UNKNOWN
     Route: 041
     Dates: start: 20110913
  8. IFOMIDE [Concomitant]
     Indication: MYCOSIS FUNGOIDES
     Dosage: DAILY DOSAGE UNKNOWN
     Route: 042
     Dates: start: 20110913
  9. DAIPHEN [Concomitant]
     Indication: PROPHYLAXIS
     Dosage: 1 DF, BID
     Route: 048
  10. TAKEPRON [Concomitant]
     Indication: PROPHYLAXIS
     Dosage: 15 MG, QD
     Route: 048
  11. MAGMITT [Concomitant]
     Indication: PROPHYLAXIS
     Dosage: 660 MG, TID
     Route: 048
  12. MIYA BM [Concomitant]
     Indication: PROPHYLAXIS
     Dosage: 1 G, TID
     Route: 048
  13. VFEND [Concomitant]
     Indication: PROPHYLAXIS
     Dosage: 400 MG, BID
     Route: 048
     Dates: end: 20111106
  14. ITRIZOLE [Concomitant]
     Indication: PROPHYLAXIS
     Dosage: 20 ML, QD
     Route: 048
     Dates: start: 20111107
  15. CYTARABINE [Concomitant]
     Indication: MYCOSIS FUNGOIDES
     Dosage: DAILY DOSAGE UNKNOWN
     Route: 065
     Dates: start: 20110808
  16. METHOTREXATE [Concomitant]
     Indication: MYCOSIS FUNGOIDES
     Dosage: DAILY DOSAGE UNKNOWN
     Route: 065
     Dates: start: 20110830
  17. ETOPOSIDE [Concomitant]
     Indication: MYCOSIS FUNGOIDES
     Dosage: DAILY DOSAGE UNKNOWN
     Route: 065
     Dates: start: 20110913

REACTIONS (2)
  - Bone marrow failure [Not Recovered/Not Resolved]
  - Nausea [Recovered/Resolved]
